FAERS Safety Report 21058345 (Version 2)
Quarter: 2022Q3

REPORT INFORMATION
  Report Type: Spontaneous
  Country: KR (occurrence: KR)
  Receive Date: 20220708
  Receipt Date: 20220722
  Transmission Date: 20221026
  Serious: Yes (Death, Hospitalization, Other)
  Sender: FDA-Public Use
  Company Number: KR-NOVARTISPH-NVSC2021KR178853

PATIENT
  Age: 70 Year
  Sex: Female
  Weight: 39.7 kg

DRUGS (4)
  1. KYMRIAH [Suspect]
     Active Substance: TISAGENLECLEUCEL
     Indication: Diffuse large B-cell lymphoma
     Dosage: ONCE/SINGLE (LIQUID)
     Route: 042
     Dates: start: 20210729, end: 20210729
  2. POLATUZUMAB VEDOTIN [Suspect]
     Active Substance: POLATUZUMAB VEDOTIN
     Indication: Product used for unknown indication
     Dosage: UNK
     Route: 065
     Dates: start: 202106
  3. CYCLOPHOSPHAMIDE [Concomitant]
     Active Substance: CYCLOPHOSPHAMIDE
     Indication: Lymphodepletion
     Dosage: 250 MG/M2 (FOR 3 DAYS)
     Route: 065
     Dates: start: 20210724, end: 20210726
  4. FLUDARABINE [Concomitant]
     Active Substance: FLUDARABINE PHOSPHATE
     Indication: Lymphodepletion
     Dosage: 25 MG/M2 (FOR 3 DAYS)
     Route: 065
     Dates: start: 20210729

REACTIONS (12)
  - Septic shock [Fatal]
  - Lymphoma [Fatal]
  - Diffuse large B-cell lymphoma recurrent [Unknown]
  - Abdominal pain [Recovering/Resolving]
  - Pyrexia [Not Recovered/Not Resolved]
  - Tachycardia [Not Recovered/Not Resolved]
  - Dyspnoea [Not Recovered/Not Resolved]
  - Cytokine release syndrome [Unknown]
  - Leukopenia [Unknown]
  - Alopecia [Recovering/Resolving]
  - Post procedural discharge [Not Recovered/Not Resolved]
  - Hypoaesthesia [Unknown]

NARRATIVE: CASE EVENT DATE: 20210729
